FAERS Safety Report 13058008 (Version 1)
Quarter: 2016Q4

REPORT INFORMATION
  Report Type: Spontaneous
  Country: US (occurrence: US)
  Receive Date: 20161223
  Receipt Date: 20161223
  Transmission Date: 20170207
  Serious: No
  Sender: FDA-Public Use
  Company Number: None

PATIENT
  Age: 46 Year
  Sex: Male

DRUGS (1)
  1. TRESIBA [Suspect]
     Active Substance: INSULIN DEGLUDEC
     Indication: DIABETES MELLITUS
     Dosage: DOSE - 130 UNITS
     Route: 058
     Dates: start: 201607, end: 20161223

REACTIONS (2)
  - Condition aggravated [None]
  - Dry mouth [None]

NARRATIVE: CASE EVENT DATE: 201607
